FAERS Safety Report 8131097-3 (Version None)
Quarter: 2012Q1

REPORT INFORMATION
  Report Type: 
  Country: None (occurrence: None)
  Receive Date: 20120207
  Receipt Date: 20111222
  Transmission Date: 20120608
  Serious: Yes (Hospitalization)
  Sender: FDA-Public Use
  Company Number: 2011SP000218

PATIENT
  Age: 35 Year
  Sex: Female
  Weight: 78.0187 kg

DRUGS (2)
  1. COUMADIN [Suspect]
     Indication: ANTICOAGULANT THERAPY
  2. NUVARING [Suspect]
     Indication: MENSTRUATION IRREGULAR
     Dates: start: 20081201, end: 20090101

REACTIONS (15)
  - HAEMORRHAGIC CYST [None]
  - DYSPNOEA [None]
  - DEEP VEIN THROMBOSIS [None]
  - IMPAIRED WORK ABILITY [None]
  - OVARIAN CYST [None]
  - ANAEMIA [None]
  - OVARIAN NEOPLASM [None]
  - OVARIAN ADHESION [None]
  - OVARIAN TORSION [None]
  - ACTIVITIES OF DAILY LIVING IMPAIRED [None]
  - OVARIAN MASS [None]
  - UTERINE LEIOMYOMA [None]
  - PELVIC PAIN [None]
  - PROTHROMBIN TIME PROLONGED [None]
  - SALPINGITIS [None]
